FAERS Safety Report 14266467 (Version 8)
Quarter: 2018Q3

REPORT INFORMATION
  Report Type: Report from Study
  Country: US (occurrence: US)
  Receive Date: 20171210
  Receipt Date: 20180705
  Transmission Date: 20181010
  Serious: Yes (Hospitalization)
  Sender: FDA-Public Use
  Company Number: PHHO2016US006260

PATIENT
  Age: 45 Year
  Sex: Female
  Weight: 47.26 kg

DRUGS (6)
  1. XGEVA [Concomitant]
     Active Substance: DENOSUMAB
     Indication: BONE DISORDER
     Dosage: 120 MG, EVERY 3 WEEKS
     Route: 058
     Dates: start: 20150113
  2. COMPARATOR TAMOXIFEN [Suspect]
     Active Substance: TAMOXIFEN
     Indication: BREAST CANCER
     Dosage: 20 MG, QD
     Route: 065
     Dates: start: 20150804, end: 20170814
  3. ERGOCALCIFEROL. [Concomitant]
     Active Substance: ERGOCALCIFEROL
     Indication: VITAMIN D DEFICIENCY
     Dosage: 60000 U, WEEKLY
     Route: 065
     Dates: start: 20141111
  4. KISQALI [Suspect]
     Active Substance: RIBOCICLIB
     Dosage: 600 MG, QD (ONCE DAILY ON DAYS 1 TO 21 IN A 28 DAY CYCLE)
     Route: 048
     Dates: start: 20160520, end: 20170807
  5. COMPARATOR GOSERELIN [Suspect]
     Active Substance: GOSERELIN
     Indication: BREAST CANCER
     Dosage: 3.6 MG, QMO
     Route: 058
     Dates: start: 20150804, end: 20170815
  6. KISQALI [Suspect]
     Active Substance: RIBOCICLIB
     Indication: BREAST CANCER
     Dosage: 600 MG, QD (ONCE DAILY ON DAYS 1 TO 21 IN A 28 DAY CYCLE)
     Route: 048
     Dates: start: 20150804, end: 20160413

REACTIONS (1)
  - Stomatitis [Recovered/Resolved with Sequelae]

NARRATIVE: CASE EVENT DATE: 20160423
